FAERS Safety Report 16844567 (Version 4)
Quarter: 2019Q4

REPORT INFORMATION
  Report Type: Spontaneous
  Country: FI (occurrence: FI)
  Receive Date: 20190924
  Receipt Date: 20191017
  Transmission Date: 20200122
  Serious: No
  Sender: FDA-Public Use
  Company Number: FI-PFIZER INC-2019402441

PATIENT
  Age: 34 Year
  Sex: Male

DRUGS (27)
  1. LEVOMEPROMAZINE [Concomitant]
     Active Substance: LEVOMEPROMAZINE
     Indication: BEHAVIOUR DISORDER
     Dosage: 100 MG, 1X/DAY
     Route: 065
  2. CITALOPRAM [Concomitant]
     Active Substance: CITALOPRAM HYDROBROMIDE
     Indication: BEHAVIOUR DISORDER
     Dosage: UNK
     Route: 065
  3. MACROGOL [Concomitant]
     Active Substance: POLYETHYLENE GLYCOLS
     Indication: BEHAVIOUR DISORDER
     Dosage: 3350 WITH DOSAGE 3 BAGS / DAY
     Route: 065
  4. TEMESTA (LORAZEPAM) [Suspect]
     Active Substance: LORAZEPAM
     Indication: BEHAVIOUR DISORDER
     Dosage: 3 MG, 1X/DAY
     Route: 065
  5. MELATONIN [Concomitant]
     Active Substance: MELATONIN
     Indication: BEHAVIOUR DISORDER
     Dosage: 3 MG, 1X/DAY
     Route: 065
  6. CANDESARTAN. [Concomitant]
     Active Substance: CANDESARTAN
     Indication: PROPHYLAXIS
     Dosage: 16 MG, 1X/DAY
     Route: 048
  7. RISPERIDONE. [Concomitant]
     Active Substance: RISPERIDONE
     Dosage: 3 MG, 1X/DAY
     Route: 065
  8. AMITRIPTYLINE [Concomitant]
     Active Substance: AMITRIPTYLINE
     Indication: BEHAVIOUR DISORDER
     Dosage: UNK
     Route: 065
  9. OLANZAPINE. [Concomitant]
     Active Substance: OLANZAPINE
     Indication: BEHAVIOUR DISORDER
     Dosage: 10 MG, 1X/DAY
     Route: 065
  10. VALPROATE [Concomitant]
     Active Substance: VALPROIC ACID
     Indication: AFFECTIVE DISORDER
  11. QUETIAPINE. [Concomitant]
     Active Substance: QUETIAPINE
     Indication: BEHAVIOUR DISORDER
     Dosage: UNK
     Route: 065
  12. CANDESARTAN. [Concomitant]
     Active Substance: CANDESARTAN
     Indication: BEHAVIOUR DISORDER
  13. RISPERIDONE. [Concomitant]
     Active Substance: RISPERIDONE
     Indication: BEHAVIOUR DISORDER
     Dosage: 4 MG, 1X/DAY
     Route: 065
  14. OXCARBAZEPINE. [Concomitant]
     Active Substance: OXCARBAZEPINE
     Indication: SEIZURE
     Dosage: 900 MG, 1X/DAY
     Route: 065
  15. CARBAMAZEPINE. [Concomitant]
     Active Substance: CARBAMAZEPINE
     Indication: BEHAVIOUR DISORDER
  16. VALPROATE [Concomitant]
     Active Substance: VALPROIC ACID
     Indication: MIGRAINE PROPHYLAXIS
  17. VALPROATE [Concomitant]
     Active Substance: VALPROIC ACID
     Indication: SEIZURE
  18. METOPROLOL. [Concomitant]
     Active Substance: METOPROLOL
     Indication: BEHAVIOUR DISORDER
     Dosage: UNK
     Route: 065
  19. SOMAC [Concomitant]
     Active Substance: PANTOPRAZOLE SODIUM
     Indication: BEHAVIOUR DISORDER
     Dosage: 20 MG, 1X/DAY
     Route: 065
  20. ESCITALOPRAM [Concomitant]
     Active Substance: ESCITALOPRAM OXALATE
     Indication: BEHAVIOUR DISORDER
     Dosage: 10 MG, 1X/DAY
     Route: 065
  21. METOPROLOL. [Concomitant]
     Active Substance: METOPROLOL
     Indication: PROPHYLAXIS
  22. TOPIRAMATE. [Concomitant]
     Active Substance: TOPIRAMATE
     Indication: MIGRAINE PROPHYLAXIS
     Dosage: UNK
     Route: 065
     Dates: start: 2015
  23. BISOPROLOL [Concomitant]
     Active Substance: BISOPROLOL
     Indication: BEHAVIOUR DISORDER
     Dosage: UNK
     Route: 065
  24. METOPROLOL. [Concomitant]
     Active Substance: METOPROLOL
     Indication: BEHAVIOUR DISORDER
  25. BISOPROLOL [Concomitant]
     Active Substance: BISOPROLOL
     Indication: PROPHYLAXIS
  26. VALPROATE [Concomitant]
     Active Substance: VALPROIC ACID
     Indication: EPILEPSY
     Dosage: 1200 MG, 1X/DAY
     Route: 065
  27. CARBAMAZEPINE. [Concomitant]
     Active Substance: CARBAMAZEPINE
     Indication: SEIZURE
     Dosage: UNK
     Route: 065

REACTIONS (2)
  - Drug ineffective for unapproved indication [Not Recovered/Not Resolved]
  - Off label use [Not Recovered/Not Resolved]
